FAERS Safety Report 8960934 (Version 2)
Quarter: 2013Q1

REPORT INFORMATION
  Report Type: Spontaneous
  Country: FR (occurrence: FR)
  Receive Date: 20121212
  Receipt Date: 20130122
  Transmission Date: 20140127
  Serious: Yes (Death)
  Sender: FDA-Public Use
  Company Number: FR-B.I. PHARMACEUTICALS,INC./RIDGEFIELD-2012-FF-01920FF

PATIENT
  Age: 86 Year
  Sex: Female

DRUGS (4)
  1. PRADAXA [Suspect]
     Indication: ATRIAL FIBRILLATION
     Dosage: 220 MG
     Route: 048
     Dates: end: 20121122
  2. ATENOLOL [Concomitant]
  3. SOLUPRED [Concomitant]
  4. ARIXTRA [Concomitant]
     Dates: start: 20121123

REACTIONS (3)
  - Death [Fatal]
  - International normalised ratio increased [Unknown]
  - Activated partial thromboplastin time prolonged [Unknown]
